FAERS Safety Report 9253679 (Version 1)
Quarter: 2013Q2

REPORT INFORMATION
  Report Type: Spontaneous
  Country: BR (occurrence: BR)
  Receive Date: 20130425
  Receipt Date: 20130425
  Transmission Date: 20140414
  Serious: Yes (Other)
  Sender: FDA-Public Use
  Company Number: BR-AMGEN-BRASP2013016704

PATIENT
  Age: 69 Year
  Sex: Female
  Weight: 47 kg

DRUGS (9)
  1. ENBREL [Suspect]
     Indication: RHEUMATOID ARTHRITIS
     Dosage: 50 MG, ONCE WEEKLY
     Route: 058
     Dates: start: 20130201
  2. METICORTEN [Concomitant]
     Indication: ARTHRITIS
     Dosage: UNK
  3. METICORTEN [Concomitant]
     Dosage: 5 MG A DAY
  4. ATENOLOL [Concomitant]
     Dosage: UNK
  5. CODATEN [Concomitant]
     Indication: PAIN
     Dosage: UNK
  6. CODATEN [Concomitant]
     Dosage: 1 TABLET (0.5 MG), 2X/DAY (IN THE MORNING AND AT NIGHT)
  7. ARADOIS [Concomitant]
     Indication: BLOOD PRESSURE INCREASED
     Dosage: 1 TABLET (50 MG), 1X/DAY
  8. PURAN T4 [Concomitant]
     Indication: THYROID DISORDER
     Dosage: 1 TABLET (50 MG), 1X/DAY
     Dates: start: 201210
  9. PANTOPRAZOL [Concomitant]
     Indication: GASTRIC DISORDER
     Dosage: 1 TABLET (20 MG), 1X/DAY

REACTIONS (5)
  - Blood pressure increased [Recovered/Resolved]
  - Urinary tract infection [Recovered/Resolved]
  - Wrong technique in drug usage process [Recovered/Resolved]
  - Injection site erythema [Recovered/Resolved]
  - Injection site pruritus [Recovered/Resolved]
